FAERS Safety Report 20182178 (Version 1)
Quarter: 2021Q4

REPORT INFORMATION
  Report Type: Spontaneous
  Country: MX (occurrence: MX)
  Receive Date: 20211214
  Receipt Date: 20211214
  Transmission Date: 20220303
  Serious: Yes (Hospitalization, Other)
  Sender: FDA-Public Use
  Company Number: MX-ELI_LILLY_AND_COMPANY-MX202112002212

PATIENT
  Age: 53 Year
  Sex: Female

DRUGS (4)
  1. VERZENIO [Suspect]
     Active Substance: ABEMACICLIB
     Indication: Breast cancer metastatic
     Dosage: 150 MG, BID
     Route: 065
     Dates: start: 20211025
  2. VERZENIO [Suspect]
     Active Substance: ABEMACICLIB
     Indication: Metastases to liver
  3. FEMARA [Concomitant]
     Active Substance: LETROZOLE
     Indication: Breast cancer metastatic
     Dosage: 2.5 MG, DAILY
     Dates: start: 20211015
  4. FEMARA [Concomitant]
     Active Substance: LETROZOLE
     Indication: Metastases to liver

REACTIONS (3)
  - Hepatic failure [Unknown]
  - Hepatotoxicity [Unknown]
  - Seizure [Unknown]
